FAERS Safety Report 10161701 (Version 1)
Quarter: 2014Q2

REPORT INFORMATION
  Report Type: Spontaneous
  Country: GB (occurrence: None)
  Receive Date: 20140507
  Receipt Date: 20140507
  Transmission Date: 20141212
  Serious: Yes (Death, Life-Threatening)
  Sender: FDA-Public Use
  Company Number: AUR-APL-2014-05284

PATIENT
  Age: 41 Year
  Sex: Female
  Weight: 83 kg

DRUGS (10)
  1. CITALOPRAM [Suspect]
     Indication: ANXIETY
     Route: 048
     Dates: start: 20060329, end: 20140108
  2. CITALOPRAM [Suspect]
     Indication: DEPRESSION
     Route: 048
     Dates: start: 20060329, end: 20140108
  3. OMEPRAZOLE [Suspect]
     Indication: PRODUCT USED FOR UNKNOWN INDICATION
     Route: 048
     Dates: start: 20120320, end: 20140108
  4. ALCOHOL (ETHANOL) [Concomitant]
  5. CODEINE (CODEINE) [Concomitant]
  6. DIAZEPAM (DIAZEPAM) [Concomitant]
  7. MORPHINE (MORPHINE) [Concomitant]
  8. NYTOL (DIPHENHYDRAMINE HYDROCHLORIDE) [Concomitant]
  9. PARACETAMOL (PARACETAMOL) [Concomitant]
  10. PROPRANOLOL HYDROCHLORIDE (PROPRANOLOL HYDROCHLORIDE) [Concomitant]

REACTIONS (3)
  - Apparent life threatening event [None]
  - Drug level increased [None]
  - Drug interaction [None]
